FAERS Safety Report 23800280 (Version 1)
Quarter: 2024Q2

REPORT INFORMATION
  Report Type: Spontaneous
  Country: JP (occurrence: JP)
  Receive Date: 20240430
  Receipt Date: 20240430
  Transmission Date: 20240716
  Serious: Yes (Life-Threatening, Other)
  Sender: FDA-Public Use
  Company Number: JP-PFIZER INC-PV202400054020

PATIENT
  Age: 31 Year
  Sex: Female

DRUGS (9)
  1. METHOTREXATE SODIUM [Suspect]
     Active Substance: METHOTREXATE SODIUM
     Indication: Metastatic choriocarcinoma
     Dosage: DAY 1, 100 MG/M2, (CYCLIC)
  2. METHOTREXATE SODIUM [Suspect]
     Active Substance: METHOTREXATE SODIUM
     Dosage: DAY 1, 200 MG/M2 OVER 12 H (CYCLIC)
  3. ACTINOMYCIN D [Suspect]
     Active Substance: DACTINOMYCIN
     Indication: Metastatic choriocarcinoma
     Dosage: DAY 1, 0.5 MG (CYCLIC)
  4. ACTINOMYCIN D [Suspect]
     Active Substance: DACTINOMYCIN
     Dosage: DAY 2, 0.5 MG (CYCLIC)
  5. ETOPOSIDE [Suspect]
     Active Substance: ETOPOSIDE
     Indication: Metastatic choriocarcinoma
     Dosage: DAY 1, 100 MG/M2 (CYCLIC)
  6. ETOPOSIDE [Suspect]
     Active Substance: ETOPOSIDE
     Dosage: DAY 2, 100 MG/M2 (CYCLIC)
  7. LEUCOVORIN [Suspect]
     Active Substance: LEUCOVORIN\LEUCOVORIN CALCIUM
     Indication: Metastatic choriocarcinoma
     Dosage: 15 MG QUARTERLY (4 DOSES, 24 H AFTER THE 1ST METHOTREXATE)
  8. VINCRISTINE [Suspect]
     Active Substance: VINCRISTINE
     Indication: Metastatic choriocarcinoma
     Dosage: DAY 8, 1 MG
  9. CYCLOPHOSPHAMIDE [Suspect]
     Active Substance: CYCLOPHOSPHAMIDE
     Indication: Metastatic choriocarcinoma
     Dosage: DAY 8, 600 MG/M2, CYCLIC

REACTIONS (2)
  - Respiratory failure [Recovering/Resolving]
  - Interstitial lung disease [Recovering/Resolving]
